FAERS Safety Report 20999306 (Version 1)
Quarter: 2022Q2

REPORT INFORMATION
  Report Type: Report from Study
  Country: US (occurrence: US)
  Receive Date: 20220623
  Receipt Date: 20220623
  Transmission Date: 20220720
  Serious: Yes (Hospitalization)
  Sender: FDA-Public Use
  Company Number: US-PFIZER INC-PV202200004286

PATIENT
  Age: 80 Year
  Sex: Female
  Weight: 58.1 kg

DRUGS (23)
  1. AXITINIB [Suspect]
     Active Substance: AXITINIB
     Dosage: 5 MG, BID
     Route: 048
     Dates: start: 20220420
  2. AXITINIB [Suspect]
     Active Substance: AXITINIB
     Dosage: 1 MG TABLET, TAKE 3 TABLETS BY MOUTH TWICE DAILY
     Route: 048
  3. AVELUMAB [Suspect]
     Active Substance: AVELUMAB
     Dosage: 800 MG, Q2WEEKS
     Dates: start: 20220420
  4. TYLENOL EXTRA STRENGTH [Concomitant]
     Active Substance: ACETAMINOPHEN
     Route: 048
  5. NORVASC [Concomitant]
     Active Substance: AMLODIPINE BESYLATE
     Dosage: TAKE 1 TABLET BY MOUTH DAILY
     Route: 048
  6. ASPIRIN [Concomitant]
     Active Substance: ASPIRIN
     Dosage: 81 MG, DAILY, ORAL CHEW
     Route: 048
  7. MYCELEX [Concomitant]
     Active Substance: CLOTRIMAZOLE
     Dosage: ONE 10MG TROCHE 5 TIMES A DAY. ALLOW TROCHE TO DISSOLVE SLOWLY IN THE MOUTH. DISSOLUTION IS COMPLETE
  8. MARINOL [Concomitant]
     Active Substance: DRONABINOL
     Dosage: TAKE 1 CAPSULE BY MOUTH EVERY NIGHT AT BEDTIME
     Route: 048
  9. FLONASE [Concomitant]
     Active Substance: FLUTICASONE PROPIONATE
     Dosage: 50 MCG/ACTUATION NASAL SPRAY, USE 2 SPRAYS IN EACH NOSTRIL DAILY. IN EACH NOSTRIL (PATIENT NOT TAKIN
     Route: 045
  10. MOTRIN [Concomitant]
     Active Substance: IBUPROFEN
     Indication: Pain
     Dosage: TAKE 1 TABLET BY MOUTH EVERY 12 HOURS AS NEEDED
     Route: 048
  11. LEVOTHYROXINE [Concomitant]
     Active Substance: LEVOTHYROXINE
     Dosage: TAKE 1 TABLET BY MOUTH EVERY MORNING
     Route: 048
  12. LIDODERM [Concomitant]
     Active Substance: LIDOCAINE
     Dosage: 5% PATCH. APPLY 1 PATCH TO THE SKIN EVERY 24 HOURS. KEEP PATCH ON FOR 12 HOURS, THEN REMOVE PATCH AN
  13. LIDOCAINE VISCOUS [Concomitant]
     Active Substance: LIDOCAINE HYDROCHLORIDE
     Indication: Pain
     Dosage: 2% SOLN. 15 ML BY SPECIAL ROUTE BY PROVIDER ROUTE EVERY 3 HOURS AS NEEDED FOR PAIN. APPLY TO THE PAI
  14. PRINIVIL [Concomitant]
     Active Substance: LISINOPRIL
     Dosage: TAKE 1 TABLET BY MOUTH DAILY
     Route: 048
  15. PRILOSEC [Concomitant]
     Active Substance: OMEPRAZOLE MAGNESIUM
     Dosage: TAKE ONE CAPSULE BY MOUTH ONE TIME DAILY BEFORE LUNCH
     Route: 048
  16. ZOFRAN [Concomitant]
     Active Substance: ONDANSETRON HYDROCHLORIDE
     Indication: Nausea
     Dosage: TAKE 1 TABLET BY MOUTH TWICE DAILY. TAKE FOR 2 DAYS FOLLOWING CHEMOTHERAPY, THEN EVERY 12 HOURS AS N
     Route: 048
  17. ZOFRAN [Concomitant]
     Active Substance: ONDANSETRON HYDROCHLORIDE
     Indication: Vomiting
  18. MIRALAX [Concomitant]
     Active Substance: POLYETHYLENE GLYCOL 3350
     Dosage: 17 GRAM ORAL PACKET. TAKE 1 PACKET BY MOUTH DAILY. DISSOLVE IN 8 OUNCES OF WATER.
     Route: 048
  19. COMPAZINE [Concomitant]
     Active Substance: PROCHLORPERAZINE MALEATE
     Indication: Nausea
     Dosage: 10 MG TABLET. TAKE 1 TABLET BY MOUTH EVERY 8 HOURS AS NEEDED FOR NAUSEA OR VOMITING.
     Route: 048
  20. COMPAZINE [Concomitant]
     Active Substance: PROCHLORPERAZINE MALEATE
     Indication: Vomiting
  21. PERI-COLACE [DOCUSATE SODIUM;SENNOSIDE A+B] [Concomitant]
     Indication: Constipation
     Dosage: TAKE 1 TABLET BY MOUTH TWICE DAILY AS NEEDED FOR CONSTIPATION (PATIENT NOT TAKING: REPORTED ON 30MAR
     Route: 048
  22. SIMETHICONE (DIMETHICONE) [Concomitant]
     Active Substance: DIMETHICONE
     Dosage: TAKE 1 CAPSULE BY MOUTH TWICE DAILY
     Route: 048
  23. ZOCOR [Concomitant]
     Active Substance: SIMVASTATIN
     Dosage: TAKE 1 TABLET BY MOUTH EVERY NIGHT AT BEDTIME
     Route: 048

REACTIONS (2)
  - Failure to thrive [Not Recovered/Not Resolved]
  - Acute kidney injury [Not Recovered/Not Resolved]

NARRATIVE: CASE EVENT DATE: 20220615
